FAERS Safety Report 10228842 (Version 1)
Quarter: 2014Q2

REPORT INFORMATION
  Report Type: Spontaneous
  Country: FR (occurrence: FR)
  Receive Date: 20140610
  Receipt Date: 20140610
  Transmission Date: 20141212
  Serious: Yes (Other)
  Sender: FDA-Public Use
  Company Number: FR-TEVA-486022ISR

PATIENT
  Age: 36 Year
  Sex: Female

DRUGS (2)
  1. OFLOXACINE RATIOPHARM 200 MG [Suspect]
     Indication: CYSTITIS
     Dosage: 2 TABLET DAILY;
     Route: 048
     Dates: start: 20130214, end: 20130216
  2. MICROVAL [Concomitant]
     Dosage: LONG-STANDING TREATMENT
     Route: 048
     Dates: start: 2010

REACTIONS (1)
  - Arthralgia [Recovered/Resolved]
